FAERS Safety Report 17331549 (Version 1)
Quarter: 2020Q1

REPORT INFORMATION
  Report Type: Report from Study
  Country: CA (occurrence: CA)
  Receive Date: 20200128
  Receipt Date: 20200128
  Transmission Date: 20200409
  Serious: Yes (Other)
  Sender: FDA-Public Use
  Company Number: CA-JNJFOC-20200132527

PATIENT
  Age: 0 Year
  Sex: Male
  Weight: 1.88 kg

DRUGS (3)
  1. PREDNISONE. [Concomitant]
     Active Substance: PREDNISONE
     Indication: COLITIS ULCERATIVE
     Dosage: EXPOSURE TIME IN GESTATIONAL WEEKS: 17 WEEKS
     Route: 048
     Dates: start: 20190220, end: 20190520
  2. REMICADE [Suspect]
     Active Substance: INFLIXIMAB
     Indication: COLITIS ULCERATIVE
     Route: 064
     Dates: start: 20180927, end: 20190606
  3. FRAGMIN [Concomitant]
     Active Substance: DALTEPARIN SODIUM
     Indication: CEREBRAL THROMBOSIS
     Dosage: 12500 UNIT?EXPOSURE TIME IN GESTATIONAL WEEKS: 6 WEEKS
     Route: 058
     Dates: start: 20181122

REACTIONS (2)
  - Premature baby [Unknown]
  - Foetal exposure during pregnancy [Recovered/Resolved]

NARRATIVE: CASE EVENT DATE: 2018
